FAERS Safety Report 17778001 (Version 5)
Quarter: 2021Q4

REPORT INFORMATION
  Report Type: Spontaneous
  Country: US (occurrence: US)
  Receive Date: 20200513
  Receipt Date: 20211223
  Transmission Date: 20220303
  Serious: Yes (Death, Other)
  Sender: FDA-Public Use
  Company Number: US-GILEAD-2020-0466770

PATIENT
  Age: 65 Year
  Sex: Male
  Weight: 113 kg

DRUGS (11)
  1. VIREAD [Suspect]
     Active Substance: TENOFOVIR DISOPROXIL FUMARATE
     Indication: HIV infection
     Dosage: UNK
     Route: 048
     Dates: start: 2001, end: 201001
  2. VIREAD [Suspect]
     Active Substance: TENOFOVIR DISOPROXIL FUMARATE
     Dosage: UNK
     Route: 048
     Dates: start: 2002, end: 2010
  3. ACETAMINOPHEN [Concomitant]
     Active Substance: ACETAMINOPHEN
  4. AMOXICILLIN [Concomitant]
     Active Substance: AMOXICILLIN
  5. ASPIRIN [Concomitant]
     Active Substance: ASPIRIN
  6. FLOMAX [Concomitant]
     Active Substance: TAMSULOSIN HYDROCHLORIDE
  7. LASIX [Concomitant]
     Active Substance: FUROSEMIDE
  8. PENICILLIN [Concomitant]
     Active Substance: PENICILLIN
  9. PREDNISONE [Concomitant]
     Active Substance: PREDNISONE
  10. RANITIDINE [Concomitant]
     Active Substance: RANITIDINE
  11. WARFARIN [Concomitant]
     Active Substance: WARFARIN

REACTIONS (8)
  - Death [Fatal]
  - Renal injury [Fatal]
  - Skeletal injury [Fatal]
  - End stage renal disease [Recovered/Resolved]
  - Chronic kidney disease [Unknown]
  - Renal failure [Recovered/Resolved]
  - Emotional distress [Unknown]
  - Pain [Unknown]

NARRATIVE: CASE EVENT DATE: 20030101
